FAERS Safety Report 15156843 (Version 1)
Quarter: 2018Q3

REPORT INFORMATION
  Report Type: Report from Study
  Country: None (occurrence: US)
  Receive Date: 20180718
  Receipt Date: 20180718
  Transmission Date: 20181010
  Serious: Yes (Other)
  Sender: FDA-Public Use
  Company Number: US-ABBVIE-16K-163-1735312-00

PATIENT
  Age: 62 Year
  Sex: Female

DRUGS (1)
  1. HUMIRA [Suspect]
     Active Substance: ADALIMUMAB
     Indication: CROHN^S DISEASE
     Route: 058
     Dates: start: 20160714

REACTIONS (12)
  - Pain in extremity [Not Recovered/Not Resolved]
  - Pain in extremity [Not Recovered/Not Resolved]
  - Lymphadenopathy [Unknown]
  - Weight decreased [Unknown]
  - Back pain [Unknown]
  - Rotator cuff syndrome [Unknown]
  - Back disorder [Unknown]
  - Procedural pain [Unknown]
  - Middle insomnia [Unknown]
  - Renal disorder [Unknown]
  - Muscle spasms [Unknown]
  - Bladder disorder [Unknown]

NARRATIVE: CASE EVENT DATE: 201608
